FAERS Safety Report 10712724 (Version 1)
Quarter: 2015Q1

REPORT INFORMATION
  Report Type: Spontaneous
  Country: US (occurrence: None)
  Receive Date: 20150114
  Receipt Date: 20150114
  Transmission Date: 20150721
  Serious: Yes (Death, Hospitalization)
  Sender: FDA-Public Use
  Company Number: None

PATIENT
  Age: 61 Year
  Sex: Male
  Weight: 119 kg

DRUGS (2)
  1. METYRAPONE [Suspect]
     Active Substance: METYRAPONE
     Indication: LUNG CANCER METASTATIC
     Route: 048
     Dates: start: 20141210, end: 20141213
  2. CYCLOPHOSPHAMIDE. [Suspect]
     Active Substance: CYCLOPHOSPHAMIDE
     Indication: LUNG CANCER METASTATIC
     Route: 042
     Dates: start: 20141210, end: 20141210

REACTIONS (13)
  - Hypoglycaemia [None]
  - Neutropenia [None]
  - Acute kidney injury [None]
  - Blood lactic acid increased [None]
  - Multi-organ failure [None]
  - Septic shock [None]
  - Respiratory failure [None]
  - Mental status changes [None]
  - International normalised ratio increased [None]
  - Adrenal insufficiency [None]
  - Hyperkalaemia [None]
  - White blood cell count decreased [None]
  - Blood bilirubin increased [None]

NARRATIVE: CASE EVENT DATE: 20141213
